FAERS Safety Report 16979376 (Version 1)
Quarter: 2019Q4

REPORT INFORMATION
  Report Type: Spontaneous
  Country: US (occurrence: US)
  Receive Date: 20191031
  Receipt Date: 20191031
  Transmission Date: 20200122
  Serious: No
  Sender: FDA-Public Use
  Company Number: US-AMGEN-USASP2019172405

PATIENT
  Age: 76 Year
  Sex: Female

DRUGS (2)
  1. PROLIA [Suspect]
     Active Substance: DENOSUMAB
     Indication: OSTEOPOROSIS POSTMENOPAUSAL
     Dosage: 60 MILLIGRAM, Q6MO
     Route: 065
     Dates: end: 201909
  2. BONIVA [Concomitant]
     Active Substance: IBANDRONATE SODIUM

REACTIONS (10)
  - Tongue erythema [Unknown]
  - Pharyngeal erythema [Unknown]
  - Sensation of foreign body [Unknown]
  - Oral pain [Recovering/Resolving]
  - Dysphagia [Unknown]
  - Hypersensitivity [Unknown]
  - Swollen tongue [Not Recovered/Not Resolved]
  - Dyspepsia [Recovering/Resolving]
  - Glossodynia [Recovering/Resolving]
  - Oropharyngeal pain [Recovering/Resolving]

NARRATIVE: CASE EVENT DATE: 201009
